FAERS Safety Report 9343203 (Version 1)
Quarter: 2013Q2

REPORT INFORMATION
  Report Type: Spontaneous
  Country: US (occurrence: US)
  Receive Date: 20130611
  Receipt Date: 20130611
  Transmission Date: 20140414
  Serious: No
  Sender: FDA-Public Use
  Company Number: US-ASTRAZENECA-2013SE40090

PATIENT
  Age: 72 Year
  Sex: Male

DRUGS (2)
  1. PULMICORT [Suspect]
     Indication: ASTHMA
     Route: 055
     Dates: start: 20011119, end: 2007
  2. PULMICORT [Suspect]
     Indication: ASTHMA
     Route: 055
     Dates: start: 2007

REACTIONS (3)
  - Throat irritation [Unknown]
  - Dysphonia [Unknown]
  - Intentional drug misuse [Unknown]
